FAERS Safety Report 13654948 (Version 1)
Quarter: 2017Q2

REPORT INFORMATION
  Report Type: Spontaneous
  Country: CA (occurrence: CA)
  Receive Date: 20170615
  Receipt Date: 20170615
  Transmission Date: 20170830
  Serious: Yes (Life-Threatening)
  Sender: FDA-Public Use
  Company Number: CA-TEVA-777864ACC

PATIENT
  Age: 72 Year
  Sex: Female
  Weight: 88 kg

DRUGS (11)
  1. AMITRIPTYLINE [Concomitant]
     Active Substance: AMITRIPTYLINE
  2. GABAPENTIN. [Concomitant]
     Active Substance: GABAPENTIN
  3. ACT PRAMIPEXOLE [Suspect]
     Active Substance: PRAMIPEXOLE
     Indication: RESTLESS LEGS SYNDROME
     Dosage: .25 MILLIGRAM DAILY;
     Route: 048
  4. VITAMIN D [Concomitant]
     Active Substance: CHOLECALCIFEROL
  5. BISOPROLOL [Concomitant]
     Active Substance: BISOPROLOL
  6. RAMIPRIL. [Concomitant]
     Active Substance: RAMIPRIL
  7. ASPIRIN. [Concomitant]
     Active Substance: ASPIRIN
  8. AMLODIPINE [Concomitant]
     Active Substance: AMLODIPINE BESYLATE
  9. ACT PRAMIPEXOLE [Suspect]
     Active Substance: PRAMIPEXOLE
     Indication: NEUROPATHY PERIPHERAL
  10. METFORMIN [Concomitant]
     Active Substance: METFORMIN HYDROCHLORIDE
  11. PREDNISONE. [Concomitant]
     Active Substance: PREDNISONE

REACTIONS (3)
  - Fatigue [Recovering/Resolving]
  - Road traffic accident [Recovering/Resolving]
  - Somnolence [Recovering/Resolving]
